FAERS Safety Report 19476694 (Version 1)
Quarter: 2021Q2

REPORT INFORMATION
  Report Type: Spontaneous
  Country: NL (occurrence: NL)
  Receive Date: 20210630
  Receipt Date: 20210630
  Transmission Date: 20210717
  Serious: Yes (Hospitalization)
  Sender: FDA-Public Use
  Company Number: NL-ORGANON-O2106NLD002327

PATIENT
  Age: 47 Year
  Sex: Female
  Weight: 95 kg

DRUGS (6)
  1. DESLORATADINE. [Suspect]
     Active Substance: DESLORATADINE
     Dosage: 5 MILLIGRAM, QID
     Route: 048
  2. XOLAIR [Concomitant]
     Active Substance: OMALIZUMAB
     Indication: URTICARIA
     Dosage: 300 MICROGRAM, MONTHLY (SELF INJECTABLE)
     Route: 050
  3. DESLORATADINE. [Suspect]
     Active Substance: DESLORATADINE
     Dosage: 5 MILLIGRAM, QID
     Route: 048
  4. DESLORATADINE. [Suspect]
     Active Substance: DESLORATADINE
     Dosage: 5 MILLIGRAM, QID
     Route: 048
  5. DESLORATADINE. [Suspect]
     Active Substance: DESLORATADINE
     Dosage: 5 MILLIGRAM, QID
     Route: 048
  6. DESLORATADINE. [Suspect]
     Active Substance: DESLORATADINE
     Indication: URTICARIA
     Dosage: 5 MILLIGRAM, QID
     Route: 048

REACTIONS (6)
  - Weight increased [Unknown]
  - Dry eye [Unknown]
  - Fatigue [Unknown]
  - Therapeutic product effect incomplete [Unknown]
  - Nausea [Unknown]
  - Dry mouth [Unknown]
